FAERS Safety Report 4448589-0 (Version None)
Quarter: 2004Q3

REPORT INFORMATION
  Report Type: 
  Country: None (occurrence: None)
  Receive Date: 20040730
  Receipt Date: 20040113
  Transmission Date: 20050211
  Serious: Yes (Other)
  Sender: FDA-Public Use
  Company Number: 2004-01-0537

PATIENT
  Age: 24 Year
  Sex: Female

DRUGS (1)
  1. INTRON A [Suspect]
     Indication: DRUG USE FOR UNKNOWN INDICATION
     Dosage: HIGH DOSE

REACTIONS (2)
  - LIVER FUNCTION TEST ABNORMAL [None]
  - SUPRAVENTRICULAR TACHYCARDIA [None]
